FAERS Safety Report 13372676 (Version 1)
Quarter: 2017Q1

REPORT INFORMATION
  Report Type: Spontaneous
  Country: US (occurrence: US)
  Receive Date: 20170324
  Receipt Date: 20170324
  Transmission Date: 20170429
  Serious: Yes (Life-Threatening, Hospitalization)
  Sender: FDA-Public Use
  Company Number: None

PATIENT
  Age: 71 Year
  Sex: Female
  Weight: 74.25 kg

DRUGS (11)
  1. METAMUCIL [Concomitant]
     Active Substance: PLANTAGO SEED
  2. DILTIAZEM - LONG-ACTING [Suspect]
     Active Substance: DILTIAZEM
     Indication: HEART RATE ABNORMAL
     Dates: start: 20151001
  3. GAX-X [Concomitant]
  4. SACCHAROMICES BULARDII (PROBIOTIC) [Concomitant]
  5. TUMS [Concomitant]
     Active Substance: CALCIUM CARBONATE
  6. LORATADINE. [Concomitant]
     Active Substance: LORATADINE
  7. OMEPRAZOLE. [Concomitant]
     Active Substance: OMEPRAZOLE
  8. DILTIAZEM - LONG-ACTING [Suspect]
     Active Substance: DILTIAZEM
     Indication: BLOOD PRESSURE ABNORMAL
     Dates: start: 20151001
  9. CRESTOR [Concomitant]
     Active Substance: ROSUVASTATIN CALCIUM
  10. FLECAINIDE 100 MG. [Suspect]
     Active Substance: FLECAINIDE
     Indication: ATRIAL FIBRILLATION
     Route: 048
     Dates: start: 20170128, end: 20170129
  11. ELIQUIS [Concomitant]
     Active Substance: APIXABAN

REACTIONS (3)
  - Dizziness [None]
  - Drug ineffective [None]
  - Atrial fibrillation [None]

NARRATIVE: CASE EVENT DATE: 20170128
